FAERS Safety Report 6491214-8 (Version None)
Quarter: 2009Q4

REPORT INFORMATION
  Report Type: 
  Country: None (occurrence: None)
  Receive Date: 20091211
  Receipt Date: 20091130
  Transmission Date: 20100525
  Serious: Yes (Other)
  Sender: FDA-Public Use
  Company Number: PHHY2009DE52895

PATIENT
  Age: 46 Year
  Sex: Male

DRUGS (2)
  1. CLOZAPINE [Suspect]
     Indication: SCHIZOPHRENIA, PARANOID TYPE
     Dosage: 400 TO 550 MG
     Dates: start: 19940101, end: 20070101
  2. CLOZAPINE [Suspect]
     Dosage: 650 MG, UNK

REACTIONS (10)
  - CONDITION AGGRAVATED [None]
  - HALLUCINATION [None]
  - INITIAL INSOMNIA [None]
  - INSOMNIA [None]
  - METABOLIC SYNDROME [None]
  - PERSECUTORY DELUSION [None]
  - POOR QUALITY SLEEP [None]
  - RAPID EYE MOVEMENTS SLEEP ABNORMAL [None]
  - SUICIDAL IDEATION [None]
  - WEIGHT INCREASED [None]
